FAERS Safety Report 26020219 (Version 1)
Quarter: 2025Q4

REPORT INFORMATION
  Report Type: Spontaneous
  Country: US (occurrence: US)
  Receive Date: 20251110
  Receipt Date: 20251110
  Transmission Date: 20260118
  Serious: No
  Sender: GALPHARM INTERNATIONAL
  Company Number: US-PERRIGO-25US005882

PATIENT

DRUGS (1)
  1. POLYETHYLENE GLYCOL 3350 [Suspect]
     Active Substance: POLYETHYLENE GLYCOL 3350
     Indication: Product used for unknown indication
     Dosage: 1 TABLESPOON, UNKNOWN
     Route: 048

REACTIONS (5)
  - Flatulence [Unknown]
  - Eructation [Unknown]
  - Back pain [Unknown]
  - Musculoskeletal chest pain [Unknown]
  - Incorrect dose administered [Unknown]
